FAERS Safety Report 9632373 (Version 2)
Quarter: 2013Q4

REPORT INFORMATION
  Report Type: Spontaneous
  Country: US (occurrence: US)
  Receive Date: 20131018
  Receipt Date: 20131023
  Transmission Date: 20140711
  Serious: No
  Sender: FDA-Public Use
  Company Number: US-BAYER-2013-126990

PATIENT
  Age: 54 Year
  Sex: Male
  Weight: 122.45 kg

DRUGS (1)
  1. ALEVE GELCAPS [Suspect]
     Indication: PAIN
     Dosage: 2 DF, BID
     Route: 048

REACTIONS (1)
  - Extra dose administered [None]
